FAERS Safety Report 22062163 (Version 3)
Quarter: 2023Q2

REPORT INFORMATION
  Report Type: Spontaneous
  Country: OM (occurrence: OM)
  Receive Date: 20230304
  Receipt Date: 20230406
  Transmission Date: 20230722
  Serious: Yes (Other)
  Sender: FDA-Public Use
  Company Number: OM-002147023-NVSC2023OM048373

PATIENT
  Age: 25 Year
  Sex: Male

DRUGS (5)
  1. HYRIMOZ [Suspect]
     Active Substance: ADALIMUMAB-ADAZ
     Indication: Behcet^s syndrome
     Dosage: 40 MG, Q2MO
     Route: 058
  2. CALCIUM [Concomitant]
     Active Substance: CALCIUM
     Indication: Product used for unknown indication
     Dosage: 1 DOSAGE FORM, QD (DURATION: 5 YEARS)
     Route: 065
     Dates: start: 20181218, end: 20230101
  3. VITAMIN D NOS [Concomitant]
     Active Substance: VITAMIN D NOS
     Indication: Product used for unknown indication
     Dosage: 1 DOSAGE FORM, QD (400) (DURATION: 5 YEARS)
     Route: 065
     Dates: start: 20181218, end: 20230101
  4. COLCHICINE [Concomitant]
     Active Substance: COLCHICINE
     Indication: Product used for unknown indication
     Dosage: 500 MCG, QD (DURATION: 5 YEARS)
     Route: 065
     Dates: start: 20181218
  5. AZATHIOPRINE [Concomitant]
     Active Substance: AZATHIOPRINE
     Indication: Product used for unknown indication
     Dosage: 100 MG (DURATION: 5 YEARS)
     Route: 065
     Dates: start: 20181218

REACTIONS (6)
  - Behcet^s syndrome [Recovered/Resolved]
  - Skin ulcer [Recovered/Resolved]
  - Skin lesion [Recovered/Resolved]
  - Pustule [Recovered/Resolved]
  - Disease recurrence [Recovered/Resolved]
  - Off label use [Unknown]

NARRATIVE: CASE EVENT DATE: 20220320
